FAERS Safety Report 9725681 (Version 1)
Quarter: 2013Q4

REPORT INFORMATION
  Report Type: Spontaneous
  Country: FR (occurrence: FR)
  Receive Date: 20131203
  Receipt Date: 20131203
  Transmission Date: 20140711
  Serious: Yes (Hospitalization)
  Sender: FDA-Public Use
  Company Number: FR-SA-2013SA122159

PATIENT
  Age: 74 Year
  Sex: Female

DRUGS (6)
  1. LASILIX [Suspect]
     Indication: HYPERTENSION
     Route: 048
     Dates: end: 20130916
  2. DETENSIEL [Suspect]
     Indication: HYPERTENSION
     Dosage: STRENGTH: 10 MG
     Route: 048
     Dates: end: 20130916
  3. LEVOTHYROX [Suspect]
     Indication: HYPERTENSION
     Route: 048
  4. OMEPRAZOLE [Suspect]
     Indication: HYPOTHYROIDISM
     Route: 048
     Dates: end: 20130916
  5. PRADAXA [Suspect]
     Indication: ATRIAL FIBRILLATION
     Route: 048
     Dates: start: 201303, end: 20130916
  6. COVERSYL [Suspect]
     Indication: HYPERTENSION
     Route: 048
     Dates: end: 20130916

REACTIONS (2)
  - Acute myocardial infarction [Recovering/Resolving]
  - Troponin increased [Recovering/Resolving]
